FAERS Safety Report 17143538 (Version 1)
Quarter: 2019Q4

REPORT INFORMATION
  Report Type: Spontaneous
  Country: CA (occurrence: CA)
  Receive Date: 20191212
  Receipt Date: 20191212
  Transmission Date: 20200122
  Serious: Yes (Other)
  Sender: FDA-Public Use
  Company Number: CA-ROCHE-2492406

PATIENT
  Age: 11 Year
  Sex: Male

DRUGS (1)
  1. SOMATROPIN. [Suspect]
     Active Substance: SOMATROPIN
     Indication: GROWTH RETARDATION
     Route: 065

REACTIONS (10)
  - Headache [Unknown]
  - Product prescribing error [Unknown]
  - Hydrocephalus [Unknown]
  - Ocular discomfort [Unknown]
  - Hypertension [Unknown]
  - Injection site pain [Unknown]
  - Drug hypersensitivity [Unknown]
  - Musculoskeletal pain [Unknown]
  - Eye haemorrhage [Unknown]
  - Neck pain [Unknown]
